FAERS Safety Report 5940629-2 (Version None)
Quarter: 2008Q4

REPORT INFORMATION
  Report Type: 
  Country: None (occurrence: None)
  Receive Date: 20081103
  Receipt Date: 20081103
  Transmission Date: 20090506
  Serious: Yes (Life-Threatening, Other)
  Sender: FDA-Public Use
  Company Number: None

PATIENT
  Age: 80 Year
  Sex: Female
  Weight: 56.6996 kg

DRUGS (2)
  1. CLINDAMYCIN HCL [Suspect]
     Indication: PURULENCE
     Dosage: 300 MG CAP 1 ~6 HRS.
     Dates: start: 20071218
  2. CLINDAMYCIN HCL [Suspect]
     Indication: TOOTH DISORDER
     Dosage: 300 MG CAP 1 ~6 HRS.
     Dates: start: 20071218

REACTIONS (7)
  - ASTHENIA [None]
  - CARDIAC DISORDER [None]
  - ERYTHEMA [None]
  - GENERAL PHYSICAL HEALTH DETERIORATION [None]
  - OEDEMA PERIPHERAL [None]
  - RESPIRATORY DISORDER [None]
  - SKIN EXFOLIATION [None]
